FAERS Safety Report 8500528-9 (Version None)
Quarter: 2012Q3

REPORT INFORMATION
  Report Type: 
  Country: None (occurrence: None)
  Receive Date: 20120710
  Receipt Date: 20120625
  Transmission Date: 20120928
  Serious: Yes (Death)
  Sender: FDA-Public Use
  Company Number: JP-ROCHE-1061822

PATIENT
  Sex: Male
  Weight: 64 kg

DRUGS (11)
  1. PREDNISOLONE [Concomitant]
     Indication: RHEUMATOID ARTHRITIS
     Route: 048
     Dates: start: 20080424
  2. PREDNISOLONE [Concomitant]
     Route: 048
  3. FOLIAMIN [Concomitant]
     Route: 048
  4. ALENDRONATE SODIUM [Concomitant]
     Route: 048
  5. LIPITOR [Concomitant]
     Indication: HYPERLIPIDAEMIA
     Route: 048
  6. METHOTREXATE [Concomitant]
     Indication: RHEUMATOID ARTHRITIS
     Route: 048
     Dates: start: 20080415
  7. PROGRAF [Concomitant]
     Indication: RHEUMATOID ARTHRITIS
     Route: 048
     Dates: start: 20090915
  8. LANSOPRAZOLE [Concomitant]
     Route: 048
  9. METHOTREXATE [Concomitant]
     Route: 048
  10. CELEBREX [Concomitant]
     Indication: RHEUMATOID ARTHRITIS
     Route: 048
  11. ACTEMRA [Suspect]
     Indication: RHEUMATOID ARTHRITIS
     Route: 041
     Dates: start: 20100202, end: 20100706

REACTIONS (2)
  - LEUKOENCEPHALOPATHY [None]
  - ENCEPHALITIS AUTOIMMUNE [None]
